FAERS Safety Report 13088817 (Version 1)
Quarter: 2017Q1

REPORT INFORMATION
  Report Type: Spontaneous
  Country: IN (occurrence: IN)
  Receive Date: 20170105
  Receipt Date: 20170105
  Transmission Date: 20170428
  Serious: Yes (Other)
  Sender: FDA-Public Use
  Company Number: IN-MYLANLABS-2016M1050980

PATIENT

DRUGS (8)
  1. ETIZOLA [Concomitant]
     Indication: PRODUCT USED FOR UNKNOWN INDICATION
     Dosage: 5 MG, QD
     Route: 048
     Dates: start: 2016
  2. PEG GRAFEEL [Suspect]
     Active Substance: PEGFILGRASTIM
     Indication: PRODUCT USED FOR UNKNOWN INDICATION
     Dosage: 6 MG, UNK
     Route: 042
     Dates: start: 20161005
  3. DOCETAXEL. [Suspect]
     Active Substance: DOCETAXEL
     Indication: BREAST CANCER
     Dosage: 120 MG, UNK
     Route: 042
     Dates: start: 20161005
  4. MET XL [Concomitant]
     Indication: HYPERTENSION
     Dosage: 50 MG, QD
     Route: 048
  5. OLMIN LN [Concomitant]
     Indication: HYPERTENSION
     Route: 048
  6. HERTRAZ [Suspect]
     Active Substance: TRASTUZUMAB
     Indication: BREAST CANCER
     Dosage: 440 MG, 3XW
     Route: 042
     Dates: start: 20161005
  7. CARBOPLATIN. [Suspect]
     Active Substance: CARBOPLATIN
     Indication: BREAST CANCER
     Dosage: UNK
     Route: 042
     Dates: start: 20161005
  8. ARVAST [Concomitant]
     Indication: PRODUCT USED FOR UNKNOWN INDICATION
     Dosage: 10 MG, QD
     Route: 048
     Dates: start: 2016

REACTIONS (7)
  - Feeding disorder [Recovered/Resolved]
  - Abasia [Recovered/Resolved]
  - Lymphocyte count decreased [Unknown]
  - Weight decreased [Unknown]
  - White blood cell count increased [Unknown]
  - Dysentery [Recovered/Resolved]
  - Asthenia [Recovered/Resolved]

NARRATIVE: CASE EVENT DATE: 201610
